FAERS Safety Report 18282796 (Version 2)
Quarter: 2021Q2

REPORT INFORMATION
  Report Type: Spontaneous
  Country: US (occurrence: US)
  Receive Date: 20200918
  Receipt Date: 20210430
  Transmission Date: 20210717
  Serious: No
  Sender: FDA-Public Use
  Company Number: US-PFIZER INC-2020357482

PATIENT
  Age: 85 Year
  Sex: Female

DRUGS (1)
  1. LYRICA [Suspect]
     Active Substance: PREGABALIN
     Indication: TRIGEMINAL NEURALGIA
     Dosage: 150 MG, 2X/DAY [2 CAPSULES TWICE A DAY 90 DAYS]
     Route: 048

REACTIONS (1)
  - Pain [Unknown]
